FAERS Safety Report 21430054 (Version 1)
Quarter: 2022Q4

REPORT INFORMATION
  Report Type: Spontaneous
  Country: US (occurrence: US)
  Receive Date: 20221009
  Receipt Date: 20221009
  Transmission Date: 20230113
  Serious: Yes (Other)
  Sender: FDA-Public Use
  Company Number: US-PURDUE-USA-2020-0232313

PATIENT
  Sex: Female

DRUGS (5)
  1. DILAUDID [Suspect]
     Active Substance: HYDROMORPHONE HYDROCHLORIDE
     Indication: Product used for unknown indication
     Dosage: UNK
     Route: 048
  2. HYDROCODONE BITARTRATE AND ACETAMINOPHEN [Suspect]
     Active Substance: ACETAMINOPHEN\HYDROCODONE BITARTRATE
     Indication: Product used for unknown indication
     Dosage: UNK
     Route: 048
  3. MORPHINE SULFATE [Suspect]
     Active Substance: MORPHINE SULFATE
     Indication: Product used for unknown indication
     Dosage: UNK
     Route: 048
  4. ACETAMINOPHEN\OXYCODONE HYDROCHLORIDE [Suspect]
     Active Substance: ACETAMINOPHEN\OXYCODONE HYDROCHLORIDE
     Indication: Product used for unknown indication
     Dosage: UNK
     Route: 048
  5. HEROIN [Suspect]
     Active Substance: DIAMORPHINE
     Indication: Product used for unknown indication
     Dosage: UNK
     Route: 065

REACTIONS (22)
  - Drug dependence [Unknown]
  - Drug abuse [Unknown]
  - Pain [Unknown]
  - Emotional distress [Unknown]
  - Myalgia [Unknown]
  - Bone pain [Unknown]
  - Sleep disorder [Unknown]
  - Respiratory rate decreased [Unknown]
  - Cold sweat [Unknown]
  - Nasopharyngitis [Unknown]
  - Influenza like illness [Unknown]
  - Decreased appetite [Unknown]
  - Hyperaesthesia [Unknown]
  - Diarrhoea [Unknown]
  - Somnolence [Unknown]
  - Depression [Unknown]
  - Confusional state [Unknown]
  - Vomiting [Unknown]
  - Constipation [Unknown]
  - Anxiety [Unknown]
  - Nausea [Unknown]
  - Drug withdrawal syndrome [Unknown]
